FAERS Safety Report 23055027 (Version 1)
Quarter: 2023Q4

REPORT INFORMATION
  Report Type: Spontaneous
  Country: US (occurrence: US)
  Receive Date: 20231011
  Receipt Date: 20231011
  Transmission Date: 20240110
  Serious: No
  Sender: FDA-Public Use
  Company Number: US-TEVA-2023-US-2929940

PATIENT
  Age: 66 Year
  Sex: Female

DRUGS (2)
  1. CILOSTAZOL [Suspect]
     Active Substance: CILOSTAZOL
     Indication: Myalgia
     Route: 065
  2. CILOSTAZOL [Suspect]
     Active Substance: CILOSTAZOL
     Indication: Muscular weakness

REACTIONS (7)
  - Abdominal discomfort [Unknown]
  - Palpitations [Unknown]
  - Migraine [Unknown]
  - Ocular discomfort [Unknown]
  - Photophobia [Unknown]
  - Vomiting [Unknown]
  - Product prescribing error [Unknown]
